FAERS Safety Report 8054244-0 (Version None)
Quarter: 2012Q1

REPORT INFORMATION
  Report Type: 
  Country: None (occurrence: None)
  Receive Date: 20120118
  Receipt Date: 20120116
  Transmission Date: 20120608
  Serious: Yes (Hospitalization, Other)
  Sender: FDA-Public Use
  Company Number: DE-BAXTER-2011BH038539

PATIENT
  Age: 42 Year
  Sex: Male

DRUGS (12)
  1. SODIUM CHLORIDE 0.9% IN PLASTIC CONTAINER [Suspect]
     Route: 042
  2. SODIUM CHLORIDE 0.9% IN PLASTIC CONTAINER [Suspect]
     Route: 042
  3. AMINOFUSIN HEPAR [Suspect]
     Route: 042
  4. AMINOFUSIN HEPAR [Suspect]
     Indication: CHRONIC FATIGUE SYNDROME
     Route: 042
     Dates: start: 20100705
  5. AMINOFUSIN HEPAR [Suspect]
     Indication: LARYNGITIS
     Route: 042
     Dates: start: 20100705
  6. SODIUM CHLORIDE 0.9% IN PLASTIC CONTAINER [Suspect]
     Indication: IMMUNODEFICIENCY
     Route: 042
     Dates: start: 20100705
  7. SODIUM CHLORIDE 0.9% IN PLASTIC CONTAINER [Suspect]
     Indication: LARYNGITIS
     Route: 042
     Dates: start: 20100705
  8. SODIUM CHLORIDE 0.9% IN PLASTIC CONTAINER [Suspect]
     Indication: CHRONIC FATIGUE SYNDROME
     Route: 042
     Dates: start: 20100705
  9. AMINOFUSIN HEPAR [Suspect]
     Route: 042
  10. SODIUM CHLORIDE 0.9% IN PLASTIC CONTAINER [Suspect]
     Route: 042
  11. AMINOFUSIN HEPAR [Suspect]
     Route: 042
  12. AMINOFUSIN HEPAR [Suspect]
     Indication: IMMUNODEFICIENCY
     Route: 042
     Dates: start: 20100705

REACTIONS (4)
  - SEPSIS [None]
  - NAUSEA [None]
  - VOMITING [None]
  - TREMOR [None]
